FAERS Safety Report 9149977 (Version 1)
Quarter: 2013Q1

REPORT INFORMATION
  Report Type: Spontaneous
  Country: US (occurrence: None)
  Receive Date: 20130228
  Receipt Date: 20130228
  Transmission Date: 20140127
  Serious: Yes (Hospitalization)
  Sender: FDA-Public Use
  Company Number: None

PATIENT
  Age: 57 Year
  Sex: Male
  Weight: 84.8 kg

DRUGS (1)
  1. NAPROXEN [Suspect]
     Indication: PAIN
     Dosage: 500 MG PRN PO
     Route: 048
     Dates: start: 20130120, end: 20130127

REACTIONS (4)
  - Dizziness [None]
  - Malaise [None]
  - Haemorrhage [None]
  - Melaena [None]
